FAERS Safety Report 25482394 (Version 3)
Quarter: 2025Q3

REPORT INFORMATION
  Report Type: Report from Study
  Country: GB (occurrence: GB)
  Receive Date: 20250626
  Receipt Date: 20250717
  Transmission Date: 20251021
  Serious: Yes (Other)
  Sender: TAKEDA
  Company Number: GB-TAKEDA-2025TUS000313

PATIENT
  Sex: Male

DRUGS (1)
  1. FRUQUINTINIB [Suspect]
     Active Substance: FRUQUINTINIB
     Indication: Adenocarcinoma of colon
     Dosage: 5 MILLIGRAM, QD
     Dates: start: 20241016, end: 20250507

REACTIONS (2)
  - Adenocarcinoma of colon [Unknown]
  - Inappropriate schedule of product administration [Unknown]
